FAERS Safety Report 17314152 (Version 1)
Quarter: 2020Q1

REPORT INFORMATION
  Report Type: Spontaneous
  Country: GB (occurrence: GB)
  Receive Date: 20200124
  Receipt Date: 20200124
  Transmission Date: 20200409
  Serious: Yes (Other)
  Sender: FDA-Public Use
  Company Number: GB-TEVA-2020-GB-1171889

PATIENT
  Age: 25 Year
  Sex: Female
  Weight: 61.68 kg

DRUGS (1)
  1. CLARIE XL PROLONGED RELEASE [Suspect]
     Active Substance: CLARITHROMYCIN
     Indication: PNEUMONIA
     Dosage: 500 MG
     Route: 048
     Dates: start: 20191208, end: 20191215

REACTIONS (11)
  - Depressed mood [Not Recovered/Not Resolved]
  - Insomnia [Recovering/Resolving]
  - Mood altered [Not Recovered/Not Resolved]
  - Anger [Not Recovered/Not Resolved]
  - Back pain [Recovering/Resolving]
  - Flatulence [Recovering/Resolving]
  - Dysgeusia [Recovering/Resolving]
  - Micturition frequency decreased [Recovering/Resolving]
  - Irritability [Recovering/Resolving]
  - Anxiety [Recovering/Resolving]
  - Abdominal pain upper [Recovering/Resolving]

NARRATIVE: CASE EVENT DATE: 20191208
